FAERS Safety Report 9308856 (Version 2)
Quarter: 2013Q2

REPORT INFORMATION
  Report Type: Report from Study
  Country: PR (occurrence: PR)
  Receive Date: 20130524
  Receipt Date: 20130613
  Transmission Date: 20140414
  Serious: Yes (Hospitalization)
  Sender: FDA-Public Use
  Company Number: PR-GILEAD-2013-0072332

PATIENT
  Age: 53 Year
  Sex: Male

DRUGS (14)
  1. EMTRICITABINE/TENOFOVIR DISOPROXIL FUMARATE [Suspect]
     Indication: HIV INFECTION
     Dosage: 1 DF, QD
     Route: 048
     Dates: start: 20100915, end: 20130326
  2. RITONAVIR [Suspect]
     Indication: HIV INFECTION
     Dosage: 1 DF, QD
     Route: 048
     Dates: start: 20100915, end: 20130326
  3. ATAZANAVIR [Suspect]
     Indication: HIV INFECTION
     Dosage: 1 DF, QD
     Route: 048
     Dates: start: 20100915, end: 20130326
  4. PLACEBO [Suspect]
     Indication: HIV INFECTION
     Dosage: 1 DF, QD
     Route: 048
     Dates: start: 20100915, end: 20130326
  5. HYDROCHLOROTHIAZIDE [Concomitant]
     Indication: HYPERTENSION
     Dosage: 25 MG, UNK
     Route: 048
     Dates: start: 20120314
  6. PROPANOLOL HYDROCHLORIDE [Concomitant]
  7. IPRATROPIUM BROMIDE [Concomitant]
     Indication: DYSPNOEA
  8. ALBUTEROL                          /00139501/ [Concomitant]
     Indication: DYSPNOEA
  9. TRAMADOL [Concomitant]
     Indication: PAIN
     Dosage: 50 MG, BID
     Route: 048
     Dates: start: 20120426
  10. MENTHOL [Concomitant]
     Indication: PAIN
  11. FOLIC ACID [Concomitant]
     Dosage: 1 MG, QD
     Route: 048
     Dates: start: 20120912
  12. THIAMINE HCL [Concomitant]
     Dosage: 100 MG, QD
     Route: 048
     Dates: start: 20120228
  13. POTASSIUM CHLORIDE [Concomitant]
  14. PROTEINS NOS [Concomitant]

REACTIONS (1)
  - Suicidal ideation [Recovered/Resolved]
